FAERS Safety Report 7167031-2 (Version None)
Quarter: 2010Q4

REPORT INFORMATION
  Report Type: 
  Country: None (occurrence: None)
  Receive Date: 20101216
  Receipt Date: 20101210
  Transmission Date: 20110411
  Serious: Yes (Other)
  Sender: FDA-Public Use
  Company Number: B0685830A

PATIENT
  Age: 35 Year
  Sex: Male

DRUGS (2)
  1. SEROXAT [Suspect]
     Indication: DEPRESSION
     Route: 048
  2. CITALOPRAM HYDROBROMIDE [Concomitant]
     Dosage: 10MG UNKNOWN

REACTIONS (2)
  - SELF-MEDICATION [None]
  - SUICIDAL IDEATION [None]
